FAERS Safety Report 8643813 (Version 2)
Quarter: 2013Q2

REPORT INFORMATION
  Report Type: Spontaneous
  Country: IT (occurrence: IT)
  Receive Date: 20120629
  Receipt Date: 20130518
  Transmission Date: 20140414
  Serious: Yes (Hospitalization)
  Sender: FDA-Public Use
  Company Number: IT-ROCHE-1078269

PATIENT
  Age: 36 Year
  Sex: Male

DRUGS (2)
  1. SYNFLEX [Suspect]
     Indication: NECK PAIN
     Dosage: (}220 MG)
     Route: 048
     Dates: start: 20120522, end: 20120523
  2. SIRDALUD [Suspect]
     Indication: NECK PAIN
     Route: 048
     Dates: start: 20120522, end: 20120523

REACTIONS (4)
  - Somnolence [Recovered/Resolved]
  - Urticaria [Recovered/Resolved]
  - Rash [Unknown]
  - Back pain [Unknown]
